FAERS Safety Report 16327475 (Version 2)
Quarter: 2019Q2

REPORT INFORMATION
  Report Type: Spontaneous
  Country: US (occurrence: US)
  Receive Date: 20190517
  Receipt Date: 20190524
  Transmission Date: 20190711
  Serious: Yes (Death)
  Sender: FDA-Public Use
  Company Number: US-ANIPHARMA-2019-US-008967

PATIENT
  Age: 51 Year
  Sex: Female

DRUGS (1)
  1. ARIMIDEX [Suspect]
     Active Substance: ANASTROZOLE
     Indication: NEOPLASM MALIGNANT
     Dosage: 1 TABLET DAILY
     Route: 048
     Dates: start: 20170801, end: 20190430

REACTIONS (3)
  - Breast cancer [Unknown]
  - Death [Fatal]
  - Metastases to liver [Unknown]

NARRATIVE: CASE EVENT DATE: 2017
